FAERS Safety Report 18318320 (Version 1)
Quarter: 2020Q3

REPORT INFORMATION
  Report Type: Spontaneous
  Country: US (occurrence: US)
  Receive Date: 20200925
  Receipt Date: 20200925
  Transmission Date: 20201103
  Serious: Yes (Hospitalization)
  Sender: FDA-Public Use
  Company Number: None

PATIENT
  Sex: Female

DRUGS (14)
  1. ATORVASTATIN [Concomitant]
     Active Substance: ATORVASTATIN
  2. CLOBETASOL [Concomitant]
     Active Substance: CLOBETASOL
  3. NOVOLOG MIX FLEXPEN [Concomitant]
  4. AMLODIPINE [Concomitant]
     Active Substance: AMLODIPINE BESYLATE
  5. BENZONATATE. [Concomitant]
     Active Substance: BENZONATATE
  6. HUMIRA [Suspect]
     Active Substance: ADALIMUMAB
     Indication: HIDRADENITIS
     Route: 058
     Dates: start: 20180221
  7. CEPHALEXIN. [Concomitant]
     Active Substance: CEPHALEXIN
  8. METOPROL SUC ER [Concomitant]
  9. NORTRIPTYLIN [Concomitant]
     Active Substance: NORTRIPTYLINE
  10. OMEPRAZOLE. [Concomitant]
     Active Substance: OMEPRAZOLE
  11. TRADJENTA [Concomitant]
     Active Substance: LINAGLIPTIN
  12. ALOGLIPTIN. [Concomitant]
     Active Substance: ALOGLIPTIN
  13. GLIMEPIRIDE. [Concomitant]
     Active Substance: GLIMEPIRIDE
  14. VALSART/HCTZ [Concomitant]

REACTIONS (2)
  - Abscess drainage [None]
  - Arthropod bite [None]
